FAERS Safety Report 8538186-X (Version None)
Quarter: 2012Q3

REPORT INFORMATION
  Report Type: 
  Country: None (occurrence: None)
  Receive Date: 20120726
  Receipt Date: 20120718
  Transmission Date: 20120928
  Serious: Yes (Hospitalization)
  Sender: FDA-Public Use
  Company Number: US-BRISTOL-MYERS SQUIBB COMPANY-16221525

PATIENT
  Age: 50 Year
  Sex: Male
  Weight: 69 kg

DRUGS (1)
  1. IPILIMUMAB [Suspect]
     Indication: MALIGNANT MELANOMA
     Dosage: LAST ADMINISTERED DT:17OCT2011,10MG/KG OVER 90MIN,Q3 WEEKS*4DOSES,Q12 ON WEEKS 24,36,48+60.
     Route: 042
     Dates: start: 20111017

REACTIONS (6)
  - VOMITING [None]
  - PANCREATITIS [None]
  - DEHYDRATION [None]
  - COLITIS [None]
  - MYALGIA [None]
  - LIPASE INCREASED [None]
